FAERS Safety Report 8357760-7 (Version None)
Quarter: 2012Q2

REPORT INFORMATION
  Report Type: 
  Country: None (occurrence: None)
  Receive Date: 20120514
  Receipt Date: 20120507
  Transmission Date: 20120825
  Serious: Yes (Hospitalization, Other)
  Sender: FDA-Public Use
  Company Number: US-ABBOTT-12P-163-0906913-00

PATIENT
  Sex: Female

DRUGS (5)
  1. PREDNISONE [Concomitant]
     Indication: RHEUMATOID ARTHRITIS
  2. HUMIRA [Suspect]
     Indication: RHEUMATOID ARTHRITIS
     Route: 058
     Dates: start: 20020101, end: 20040101
  3. ENBREL [Suspect]
     Indication: RHEUMATOID ARTHRITIS
     Dates: start: 20050101, end: 20060101
  4. KINERET [Suspect]
     Indication: RHEUMATOID ARTHRITIS
     Dates: start: 20050101, end: 20050101
  5. CELEBREX [Concomitant]
     Indication: RHEUMATOID ARTHRITIS

REACTIONS (9)
  - VOMITING [None]
  - COMA [None]
  - DYSPNOEA [None]
  - RHEUMATOID ARTHRITIS [None]
  - PNEUMONIA FUNGAL [None]
  - PNEUMONIA [None]
  - DRUG INEFFECTIVE [None]
  - ARTHRALGIA [None]
  - PYREXIA [None]
